FAERS Safety Report 9455492 (Version 1)
Quarter: 2013Q3

REPORT INFORMATION
  Report Type: Spontaneous
  Country: JP (occurrence: JP)
  Receive Date: 20130813
  Receipt Date: 20130813
  Transmission Date: 20140515
  Serious: Yes (Other)
  Sender: FDA-Public Use
  Company Number: JP-PFIZER INC-2013207594

PATIENT
  Age: 60 Year
  Sex: Male

DRUGS (1)
  1. HALCION [Suspect]
     Indication: INSOMNIA
     Dosage: UNK
     Route: 048
     Dates: end: 20130711

REACTIONS (2)
  - Glaucoma [Unknown]
  - Miosis [Unknown]
